FAERS Safety Report 4913794-3 (Version None)
Quarter: 2006Q1

REPORT INFORMATION
  Report Type: 
  Country: None (occurrence: None)
  Receive Date: 20060216
  Receipt Date: 20060207
  Transmission Date: 20060701
  Serious: Yes (Death)
  Sender: FDA-Public Use
  Company Number: IE-GLAXOSMITHKLINE-B0411484A

PATIENT
  Age: 74 Year
  Sex: Male

DRUGS (2)
  1. AMOXICILLIN AND CLAVULANATE POTASSIUM [Suspect]
     Dosage: 1125MG PER DAY
     Route: 048
  2. DIOVAN HCT [Concomitant]

REACTIONS (4)
  - HEPATIC FAILURE [None]
  - HEPATITIS [None]
  - HEPATITIS CHOLESTATIC [None]
  - RENAL FAILURE [None]
